FAERS Safety Report 12055283 (Version 1)
Quarter: 2016Q1

REPORT INFORMATION
  Report Type: Spontaneous
  Country: US (occurrence: US)
  Receive Date: 20160209
  Receipt Date: 20160209
  Transmission Date: 20160526
  Serious: No
  Sender: FDA-Public Use
  Company Number: US-APOTEX-2015AP015513

PATIENT
  Age: 76 Year
  Sex: Male

DRUGS (2)
  1. ARIPIPRAZOLE TABLETS [Suspect]
     Active Substance: ARIPIPRAZOLE
     Indication: MAJOR DEPRESSION
     Dosage: 20 MG/DAY
     Route: 065
  2. ARIPIPRAZOLE TABLETS [Suspect]
     Active Substance: ARIPIPRAZOLE
     Dosage: 10 MG/DAY
     Route: 065

REACTIONS (3)
  - Tardive dyskinesia [Unknown]
  - Dyskinesia [Unknown]
  - Incorrect dose administered [Unknown]
